FAERS Safety Report 20224671 (Version 1)
Quarter: 2021Q4

REPORT INFORMATION
  Report Type: Spontaneous
  Country: NO (occurrence: NO)
  Receive Date: 20211223
  Receipt Date: 20211223
  Transmission Date: 20220303
  Serious: No
  Sender: FDA-Public Use
  Company Number: NO-LUPIN PHARMACEUTICALS INC.-2021-25223

PATIENT
  Age: 25 Year
  Sex: Female

DRUGS (12)
  1. LEVETIRACETAM [Suspect]
     Active Substance: LEVETIRACETAM
     Indication: Juvenile myoclonic epilepsy
     Dosage: UNK
     Route: 065
  2. LEVETIRACETAM [Suspect]
     Active Substance: LEVETIRACETAM
     Indication: Generalised tonic-clonic seizure
  3. LEVETIRACETAM [Suspect]
     Active Substance: LEVETIRACETAM
     Indication: Myoclonus
  4. BRIVARACETAM [Concomitant]
     Active Substance: BRIVARACETAM
     Indication: Juvenile myoclonic epilepsy
     Dosage: 75 MILLIGRAM, BID
     Route: 065
  5. BRIVARACETAM [Concomitant]
     Active Substance: BRIVARACETAM
     Indication: Generalised tonic-clonic seizure
  6. BRIVARACETAM [Concomitant]
     Active Substance: BRIVARACETAM
     Indication: Myoclonus
  7. VALPROATE [Concomitant]
     Active Substance: VALPROIC ACID
     Indication: Juvenile myoclonic epilepsy
     Dosage: UNK
     Route: 065
  8. VALPROATE [Concomitant]
     Active Substance: VALPROIC ACID
     Indication: Generalised tonic-clonic seizure
  9. VALPROATE [Concomitant]
     Active Substance: VALPROIC ACID
     Indication: Myoclonus
  10. ZONISAMIDE [Concomitant]
     Active Substance: ZONISAMIDE
     Indication: Juvenile myoclonic epilepsy
     Dosage: UNK
     Route: 065
  11. ZONISAMIDE [Concomitant]
     Active Substance: ZONISAMIDE
     Indication: Generalised tonic-clonic seizure
  12. ZONISAMIDE [Concomitant]
     Active Substance: ZONISAMIDE
     Indication: Myoclonus

REACTIONS (1)
  - Mental disorder [Unknown]
